FAERS Safety Report 5413571-3 (Version None)
Quarter: 2007Q3

REPORT INFORMATION
  Report Type: 
  Country: None (occurrence: None)
  Receive Date: 20070814
  Receipt Date: 20070808
  Transmission Date: 20080115
  Serious: Yes (Other)
  Sender: FDA-Public Use
  Company Number: US-ASTRAZENECA-2006UW00838

PATIENT
  Age: 52 Year
  Sex: Female
  Weight: 63.5 kg

DRUGS (4)
  1. ARIMIDEX [Suspect]
     Indication: ENDOMETRIAL CANCER
     Route: 048
     Dates: end: 20061201
  2. TAMOXIFEN CITRATE [Suspect]
     Indication: ENDOMETRIAL CANCER
     Route: 048
  3. NEURONTIN [Concomitant]
  4. WELLBUTRIN [Concomitant]

REACTIONS (5)
  - HYPOAESTHESIA [None]
  - LUMBOSACRAL PLEXUS INJURY [None]
  - MUSCLE ATROPHY [None]
  - NEUROPATHY PERIPHERAL [None]
  - OFF LABEL USE [None]
